FAERS Safety Report 6537300-5 (Version None)
Quarter: 2010Q1

REPORT INFORMATION
  Report Type: 
  Country: None (occurrence: None)
  Receive Date: 20100110
  Receipt Date: 20091223
  Transmission Date: 20100710
  Serious: Yes (Hospitalization)
  Sender: FDA-Public Use
  Company Number: 003692

PATIENT
  Sex: Male
  Weight: 4.9896 kg

DRUGS (1)
  1. LACOSAMIDE [Suspect]
     Indication: EPILEPSY
     Dosage: (400 MG QD INTRA-UTERINE)
     Route: 015
     Dates: start: 20090109, end: 20090514

REACTIONS (6)
  - CAESAREAN SECTION [None]
  - IMMATURE RESPIRATORY SYSTEM [None]
  - LARGE FOR DATES BABY [None]
  - MATERNAL DRUGS AFFECTING FOETUS [None]
  - POLYHYDRAMNIOS [None]
  - PULMONARY OEDEMA NEONATAL [None]
